FAERS Safety Report 9268529 (Version 2)
Quarter: 2013Q2

REPORT INFORMATION
  Report Type: Spontaneous
  Country: US (occurrence: US)
  Receive Date: 20130502
  Receipt Date: 20130610
  Transmission Date: 20140414
  Serious: Yes (Hospitalization)
  Sender: FDA-Public Use
  Company Number: US-CELGENEUS-163-21880-13044725

PATIENT
  Age: 97 Year
  Sex: Female
  Weight: 41.31 kg

DRUGS (8)
  1. REVLIMID [Suspect]
     Indication: PLASMA CELL MYELOMA
     Dosage: 5 MILLIGRAM
     Route: 048
     Dates: start: 20130225, end: 20130429
  2. PROPRANOLOL [Concomitant]
     Indication: HYPERTENSION
     Route: 065
  3. TEMAZEPAM [Concomitant]
     Indication: SLEEP DISORDER
     Dosage: 7.5 MILLIGRAM
     Route: 065
  4. ASA [Concomitant]
     Indication: CARDIAC DISORDER
     Dosage: 81 MILLIGRAM
     Route: 065
  5. MVI [Concomitant]
     Indication: VITAMIN SUPPLEMENTATION
     Route: 065
  6. FOLATE [Concomitant]
     Indication: VITAMIN SUPPLEMENTATION
     Dosage: 1 MILLIGRAM
     Route: 065
  7. LEVOTHYROXINE [Concomitant]
     Indication: HYPOTHYROIDISM
     Dosage: 25 MICROGRAM
     Route: 065
  8. LIPITOR [Concomitant]
     Indication: HYPERLIPIDAEMIA
     Dosage: 10 MILLIGRAM
     Route: 065

REACTIONS (2)
  - Respiratory disorder [Unknown]
  - Influenza like illness [Unknown]
